FAERS Safety Report 6140625-9 (Version None)
Quarter: 2009Q2

REPORT INFORMATION
  Report Type: 
  Country: None (occurrence: None)
  Receive Date: 20090402
  Receipt Date: 20090330
  Transmission Date: 20091009
  Serious: Yes (Other)
  Sender: FDA-Public Use
  Company Number: IT-SP-2009-01301

PATIENT

DRUGS (2)
  1. IMMUCYST [Suspect]
     Indication: BLADDER CANCER
     Dosage: 81MG ONCE/WEEK FOR 6 CONSECUTIVE WKS
     Route: 043
  2. PRULIFOXACIN [Concomitant]
     Dosage: 3 DAY COURSE (TREATMENT GROUP)
     Route: 048

REACTIONS (25)
  - ARTHRALGIA [None]
  - ARTHRITIS [None]
  - ASTHENIA [None]
  - BOVINE TUBERCULOSIS [None]
  - CHILLS [None]
  - CONTRACTED BLADDER [None]
  - CYSTITIS [None]
  - CYSTITIS BACTERIAL [None]
  - DYSURIA [None]
  - EPIDIDYMITIS [None]
  - HAEMATURIA [None]
  - INFLUENZA LIKE ILLNESS [None]
  - LIVER DISORDER [None]
  - LUNG INFECTION [None]
  - MALAISE [None]
  - MICTURITION URGENCY [None]
  - MYALGIA [None]
  - NOCTURIA [None]
  - PELVIC PAIN [None]
  - POLLAKIURIA [None]
  - PROSTATITIS [None]
  - PYREXIA [None]
  - RASH [None]
  - URETERIC OBSTRUCTION [None]
  - URINARY INCONTINENCE [None]
